FAERS Safety Report 9241851 (Version 1)
Quarter: 2013Q2

REPORT INFORMATION
  Report Type: Spontaneous
  Country: US (occurrence: US)
  Receive Date: 20130419
  Receipt Date: 20130419
  Transmission Date: 20140414
  Serious: Yes (Other)
  Sender: FDA-Public Use
  Company Number: US-PFIZER INC-2013120757

PATIENT
  Age: 64 Year
  Sex: Female

DRUGS (11)
  1. XELJANZ [Suspect]
     Indication: RHEUMATOID ARTHRITIS
     Dosage: 5 MG, 2X/DAY
     Route: 048
  2. MENTHOL [Concomitant]
     Dosage: UNK
  3. VITAMIN E [Concomitant]
     Dosage: UNK
  4. FOLIC ACID [Concomitant]
     Dosage: UNK
  5. METOPROLOL SUCCINATE [Concomitant]
     Dosage: UNK
  6. VALACICLOVIR HYDROCHLORIDE [Concomitant]
     Dosage: UNK
  7. ZOLPIDEM TARTRATE [Concomitant]
     Dosage: UNK
  8. TOPIRAMATE [Concomitant]
     Dosage: UNK
  9. DIOVAN [Concomitant]
     Dosage: UNK
  10. HYDROCODONE CP [Concomitant]
     Dosage: UNK
  11. NABUMETONE [Concomitant]
     Dosage: UNK

REACTIONS (4)
  - Diplopia [Unknown]
  - Chromaturia [Unknown]
  - Dysuria [Unknown]
  - Abdominal pain upper [Unknown]
